FAERS Safety Report 4690245-8 (Version None)
Quarter: 2005Q2

REPORT INFORMATION
  Report Type: 
  Country: None (occurrence: None)
  Receive Date: 20050613
  Receipt Date: 20050531
  Transmission Date: 20051028
  Serious: Yes (Death)
  Sender: FDA-Public Use
  Company Number: 2005SP000209

PATIENT
  Age: 53 Year
  Sex: Female

DRUGS (6)
  1. LUNESTA [Suspect]
     Indication: INSOMNIA
     Dosage: 3 MG; HS; ORAL
     Route: 048
     Dates: start: 20050408, end: 20050401
  2. DIOVAN [Concomitant]
  3. CLONAZEPAM [Concomitant]
  4. TRAZODONE [Concomitant]
  5. ULTRACET [Concomitant]
  6. MIROPEX [Concomitant]

REACTIONS (4)
  - COMPLETED SUICIDE [None]
  - DEPRESSION [None]
  - DYSARTHRIA [None]
  - OVERDOSE [None]
